FAERS Safety Report 6822154-X (Version None)
Quarter: 2010Q3

REPORT INFORMATION
  Report Type: 
  Country: None (occurrence: None)
  Receive Date: 20100708
  Receipt Date: 20100629
  Transmission Date: 20110219
  Serious: Yes (Hospitalization)
  Sender: FDA-Public Use
  Company Number: US-JNJFOC-20100603367

PATIENT
  Sex: Female
  Weight: 44.45 kg

DRUGS (9)
  1. DURAGESIC-100 [Suspect]
     Indication: PAIN
     Route: 062
  2. DURAGESIC-100 [Suspect]
     Route: 062
  3. RYTHMOL [Concomitant]
     Indication: ARRHYTHMIA
     Route: 048
  4. NADOLOL [Concomitant]
     Indication: HYPERTENSION
     Route: 048
  5. PREDNISONE [Concomitant]
     Indication: ARTHRITIS
     Route: 048
  6. LEFLUNOMIDE [Concomitant]
     Indication: ARTHRITIS
     Route: 048
  7. VITAMIN D [Concomitant]
     Indication: ARTHRITIS
     Route: 048
  8. PREMARIN [Concomitant]
     Indication: HORMONE LEVEL ABNORMAL
     Route: 048
  9. LISINOPRIL [Concomitant]
     Indication: HYPERTENSION
     Route: 048

REACTIONS (11)
  - ASTHMA [None]
  - BLOOD PRESSURE INCREASED [None]
  - CARDIAC PACEMAKER INSERTION [None]
  - DIARRHOEA [None]
  - FEELING JITTERY [None]
  - HEADACHE [None]
  - INFLUENZA LIKE ILLNESS [None]
  - INSOMNIA [None]
  - PRODUCT ADHESION ISSUE [None]
  - PULMONARY HYPERTENSION [None]
  - WITHDRAWAL SYNDROME [None]
